FAERS Safety Report 4496740-9 (Version None)
Quarter: 2004Q4

REPORT INFORMATION
  Report Type: 
  Country: None (occurrence: None)
  Receive Date: 20041109
  Receipt Date: 20040423
  Transmission Date: 20050328
  Serious: Yes (Hospitalization)
  Sender: FDA-Public Use
  Company Number: BR-ROCHE-365565

PATIENT
  Age: 65 Year
  Sex: Male
  Weight: 50 kg

DRUGS (14)
  1. CAPECITABINE [Suspect]
     Dosage: FOURTEEN DAYS TREATMENT FOLLOWED BY ONE WEEK REST.
     Route: 048
     Dates: start: 20040407, end: 20040417
  2. CAPECITABINE [Suspect]
     Route: 048
     Dates: end: 20040428
  3. CAPECITABINE [Suspect]
     Route: 048
     Dates: start: 20040506, end: 20040623
  4. CAPECITABINE [Suspect]
     Dosage: FOURTEEN DAYS TREATMENT FOLLOWED BY ONE WEEK REST.
     Route: 048
     Dates: start: 20040716, end: 20040924
  5. OXALIPLATIN [Suspect]
     Dosage: 190 MG Q3W.
     Route: 042
     Dates: start: 20040407, end: 20040428
  6. OXALIPLATIN [Suspect]
     Route: 042
     Dates: start: 20040506, end: 20040924
  7. .9 NORMAL SALINE [Concomitant]
     Dates: start: 20040422, end: 20040425
  8. SODIUM CHLORIDE INJ [Concomitant]
     Dates: start: 20040422, end: 20040425
  9. CALCIUM GLUCONATE [Concomitant]
     Dates: start: 20040422, end: 20040425
  10. METOCLOPRAMIDE [Concomitant]
     Dates: start: 20040422, end: 20040425
  11. DIMENHYDRINATE [Concomitant]
     Dosage: 30ML TDD STOPPED ON 25 APRIL, 2004.  RESTARTED ON 23 SEPTEMBER, 2004, AT DOSE OF ^TWO VIALS^ DAILY.
     Dates: start: 20040422, end: 20040928
  12. NYSTATIN [Concomitant]
     Dosage: INTERRUPTED FROM 2 MAY UNTIL 5 JULY
     Dates: start: 20040428, end: 20040709
  13. OMEPRAZOLE [Concomitant]
     Dosage: 22-25 APR 2004: 80 MG REDUCED TO 40 MG ON 26 APR 2004.
     Dates: start: 20040422
  14. HYDROCORTISONE [Concomitant]
     Dates: start: 20040923, end: 20040923

REACTIONS (5)
  - DIARRHOEA [None]
  - GASTRITIS [None]
  - INTESTINAL HAEMORRHAGE [None]
  - MUCOSAL INFLAMMATION [None]
  - RENAL FAILURE [None]
